FAERS Safety Report 15736875 (Version 1)
Quarter: 2018Q4

REPORT INFORMATION
  Report Type: Spontaneous
  Country: IT (occurrence: IT)
  Receive Date: 20181218
  Receipt Date: 20181218
  Transmission Date: 20190205
  Serious: Yes (Hospitalization)
  Sender: FDA-Public Use
  Company Number: IT-ROCHE-2230677

PATIENT
  Age: 20 Year
  Sex: Male

DRUGS (4)
  1. LARGACTIL [Concomitant]
     Active Substance: CHLORPROMAZINE
     Route: 065
  2. SERENASE (ITALY) [Concomitant]
     Active Substance: HALOPERIDOL
     Route: 065
  3. DEPAKIN CHRONO [Concomitant]
     Active Substance: VALPROIC ACID
     Route: 065
  4. VALIUM [Suspect]
     Active Substance: DIAZEPAM
     Indication: PRODUCT USED FOR UNKNOWN INDICATION
     Route: 065

REACTIONS (4)
  - Intentional self-injury [Unknown]
  - Drug abuse [Unknown]
  - Sluggishness [Unknown]
  - Decreased activity [Unknown]

NARRATIVE: CASE EVENT DATE: 20180112
